FAERS Safety Report 21771131 (Version 1)
Quarter: 2022Q4

REPORT INFORMATION
  Report Type: Spontaneous
  Country: GB (occurrence: None)
  Receive Date: 20221223
  Receipt Date: 20221223
  Transmission Date: 20230113
  Serious: Yes (Disabling)
  Sender: FDA-Public Use
  Company Number: 2022A408307

PATIENT
  Age: 62 Year
  Sex: Male
  Weight: 79 kg

DRUGS (4)
  1. DAPAGLIFLOZIN [Suspect]
     Active Substance: DAPAGLIFLOZIN
     Route: 048
  2. HYDROCORTISONE [Concomitant]
     Active Substance: HYDROCORTISONE
     Dosage: APPLY THINLY ONCE A DAY AS DIRECTED
     Route: 065
     Dates: start: 20220922, end: 20221104
  3. MEBEVERINE [Concomitant]
     Active Substance: MEBEVERINE
     Dosage: TWENTY MINUTES BEFORE FOOD
     Route: 065
     Dates: start: 20220825, end: 20221013
  4. MEMANTINE [Concomitant]
     Active Substance: MEMANTINE
     Route: 065
     Dates: start: 20221101

REACTIONS (2)
  - Paraesthesia [Unknown]
  - Allodynia [Unknown]
